FAERS Safety Report 23771536 (Version 1)
Quarter: 2024Q2

REPORT INFORMATION
  Report Type: Spontaneous
  Country: GB (occurrence: GB)
  Receive Date: 20240423
  Receipt Date: 20240423
  Transmission Date: 20240716
  Serious: Yes (Other)
  Sender: FDA-Public Use
  Company Number: GB-BAXTER-2020BAX017657

PATIENT
  Age: 51 Year
  Sex: Male
  Weight: 53 kg

DRUGS (207)
  1. APREPITANT [Suspect]
     Active Substance: APREPITANT
     Dosage: 1 DF, QD (1 DOSE (UNIT SPECIFIED))
     Route: 065
  2. APREPITANT [Suspect]
     Active Substance: APREPITANT
     Dosage: 125 MG
     Route: 065
     Dates: start: 20200826
  3. APREPITANT [Suspect]
     Active Substance: APREPITANT
     Dosage: 125 MG
     Route: 065
  4. APREPITANT [Suspect]
     Active Substance: APREPITANT
     Dosage: 125 MG (D1 (125 MG))
     Route: 065
     Dates: start: 20200825
  5. APREPITANT [Suspect]
     Active Substance: APREPITANT
     Dosage: 125 MG (D1 (125 MG)/125 MG, 1X; IN TOTAL/D1)
     Route: 065
     Dates: start: 20200825
  6. APREPITANT [Suspect]
     Active Substance: APREPITANT
     Dosage: 125 MG (D1 (125 MG)/125 MG, 1X; IN TOTAL/D1)
     Route: 065
     Dates: start: 20200826
  7. APREPITANT [Suspect]
     Active Substance: APREPITANT
     Dosage: D1 (125 MG)/125 MG, 1X; IN TOTAL/D1UNK
     Route: 065
  8. APREPITANT [Suspect]
     Active Substance: APREPITANT
     Indication: Supportive care
     Dosage: 80 MG, (D2) SINGLE (IN TOTAL) REGIMEN #2; ;
     Route: 065
     Dates: start: 20200825
  9. APREPITANT [Suspect]
     Active Substance: APREPITANT
     Dosage: 80 MG
     Route: 065
     Dates: start: 20200826
  10. APREPITANT [Suspect]
     Active Substance: APREPITANT
     Dosage: 80 MG
     Route: 065
  11. APREPITANT [Suspect]
     Active Substance: APREPITANT
     Dosage: 80 MG (D2 (80MG) IN TOTAL)
     Route: 065
     Dates: start: 20200825
  12. APREPITANT [Suspect]
     Active Substance: APREPITANT
     Dosage: 80 MG (D2 (80MG) IN TOTAL) (80 MG)
     Route: 065
     Dates: start: 20200825
  13. APREPITANT [Suspect]
     Active Substance: APREPITANT
     Dosage: 80 MG (D2 (80MG) IN TOTAL) (80 MG)
     Route: 065
     Dates: start: 20200826
  14. APREPITANT [Suspect]
     Active Substance: APREPITANT
     Dosage: 80 MG (D2 (80MG), IN TOTAL)
     Route: 065
     Dates: start: 20200825
  15. APREPITANT [Suspect]
     Active Substance: APREPITANT
     Dosage: 80 MG (D2)
     Route: 065
     Dates: start: 20200825
  16. APREPITANT [Suspect]
     Active Substance: APREPITANT
     Dosage: UNK, QD;
     Route: 065
     Dates: start: 20200826
  17. APREPITANT [Suspect]
     Active Substance: APREPITANT
     Indication: Mineral supplementation
     Dosage: UNK UNK, QD
     Route: 065
  18. APREPITANT [Suspect]
     Active Substance: APREPITANT
     Dosage: UNK UNK, QD
     Route: 065
  19. APREPITANT [Suspect]
     Active Substance: APREPITANT
     Dosage: UNK
     Route: 065
  20. APREPITANT [Suspect]
     Active Substance: APREPITANT
     Dosage: UNK
     Route: 065
  21. CALCIUM CARBONATE\CHOLECALCIFEROL [Suspect]
     Active Substance: CALCIUM CARBONATE\CHOLECALCIFEROL
     Indication: Mineral supplementation
     Dosage: 1 DF, QD
     Route: 048
  22. CALCIUM CARBONATE\CHOLECALCIFEROL [Suspect]
     Active Substance: CALCIUM CARBONATE\CHOLECALCIFEROL
     Dosage: 1 DF, QD (TABLET 2UNK)
     Route: 065
  23. CALCIUM CARBONATE\CHOLECALCIFEROL [Suspect]
     Active Substance: CALCIUM CARBONATE\CHOLECALCIFEROL
     Dosage: 1 DF, QD (TABLET 2UNK)
     Route: 065
  24. CALCIUM CARBONATE\CHOLECALCIFEROL [Suspect]
     Active Substance: CALCIUM CARBONATE\CHOLECALCIFEROL
     Dosage: 1 DOSAGE FORM, QD ((TABLET 2UNK))
     Route: 065
  25. CALCIUM CARBONATE\CHOLECALCIFEROL [Suspect]
     Active Substance: CALCIUM CARBONATE\CHOLECALCIFEROL
     Dosage: 1 DOSAGE FORM, QD ((TABLET(1D); 1DF) (1 DOSAGE FORMS))
     Route: 048
  26. CALCIUM CARBONATE\CHOLECALCIFEROL [Suspect]
     Active Substance: CALCIUM CARBONATE\CHOLECALCIFEROL
     Dosage: 1 DOSAGE FORM, QD (QD/1 DF; QD TABLETS)
     Route: 065
  27. CALCIUM CARBONATE\CHOLECALCIFEROL [Suspect]
     Active Substance: CALCIUM CARBONATE\CHOLECALCIFEROL
     Dosage: 1 DF
     Route: 065
  28. CALCIUM CARBONATE\CHOLECALCIFEROL [Suspect]
     Active Substance: CALCIUM CARBONATE\CHOLECALCIFEROL
     Dosage: 1 DF, QD
     Route: 065
  29. CALCIUM CARBONATE\CHOLECALCIFEROL [Suspect]
     Active Substance: CALCIUM CARBONATE\CHOLECALCIFEROL
     Dosage: 1 DF, QD
     Route: 065
  30. CALCIUM CARBONATE\CHOLECALCIFEROL [Suspect]
     Active Substance: CALCIUM CARBONATE\CHOLECALCIFEROL
     Dosage: 1 DF, QD
     Route: 065
  31. CALCIUM CARBONATE\CHOLECALCIFEROL [Suspect]
     Active Substance: CALCIUM CARBONATE\CHOLECALCIFEROL
     Dosage: 1 DF, QD
     Route: 065
  32. CALCIUM CARBONATE\CHOLECALCIFEROL [Suspect]
     Active Substance: CALCIUM CARBONATE\CHOLECALCIFEROL
     Dosage: 1 DF;
     Route: 065
  33. CALCIUM CARBONATE\CHOLECALCIFEROL [Suspect]
     Active Substance: CALCIUM CARBONATE\CHOLECALCIFEROL
     Dosage: 1 DOSAGE FORM
     Route: 065
  34. CALCIUM CARBONATE\CHOLECALCIFEROL [Suspect]
     Active Substance: CALCIUM CARBONATE\CHOLECALCIFEROL
     Indication: Mineral supplementation
     Dosage: 2 DF, QD
     Route: 065
  35. CALCIUM CARBONATE\CHOLECALCIFEROL [Suspect]
     Active Substance: CALCIUM CARBONATE\CHOLECALCIFEROL
     Dosage: 2 DOSAGE FORM, QD ((TABLET), TABLET 2 UNK) (2 DOSAGE)
     Route: 048
  36. CALCIUM CARBONATE\CHOLECALCIFEROL [Suspect]
     Active Substance: CALCIUM CARBONATE\CHOLECALCIFEROL
     Dosage: 2 DOSAGE FORM, QD (QD (TABLET 2 UNK))
     Route: 065
  37. CALCIUM CARBONATE\CHOLECALCIFEROL [Suspect]
     Active Substance: CALCIUM CARBONATE\CHOLECALCIFEROL
     Dosage: 2 DF (TABLET 2 (2 DOSAGE FORMS, 1 D))
     Route: 065
  38. CALCIUM CARBONATE\CHOLECALCIFEROL [Suspect]
     Active Substance: CALCIUM CARBONATE\CHOLECALCIFEROL
     Dosage: 2 DF, QD
     Route: 065
  39. CALCIUM CARBONATE\CHOLECALCIFEROL [Suspect]
     Active Substance: CALCIUM CARBONATE\CHOLECALCIFEROL
     Dosage: 2 DF, QD
     Route: 065
  40. CALCIUM CARBONATE\CHOLECALCIFEROL [Suspect]
     Active Substance: CALCIUM CARBONATE\CHOLECALCIFEROL
     Dosage: 2 DF, QD
     Route: 065
  41. CALCIUM CARBONATE\CHOLECALCIFEROL [Suspect]
     Active Substance: CALCIUM CARBONATE\CHOLECALCIFEROL
     Dosage: 2 DF;
     Route: 048
  42. CALCIUM CARBONATE\CHOLECALCIFEROL [Suspect]
     Active Substance: CALCIUM CARBONATE\CHOLECALCIFEROL
     Dosage: 2 DF;
     Route: 065
  43. CALCIUM CARBONATE\CHOLECALCIFEROL [Suspect]
     Active Substance: CALCIUM CARBONATE\CHOLECALCIFEROL
     Dosage: QD
     Route: 065
  44. CALCIUM CARBONATE\CHOLECALCIFEROL [Suspect]
     Active Substance: CALCIUM CARBONATE\CHOLECALCIFEROL
     Dosage: UNK DOSAGE FORM, QD
     Route: 065
  45. CALCIUM CARBONATE\CHOLECALCIFEROL [Suspect]
     Active Substance: CALCIUM CARBONATE\CHOLECALCIFEROL
     Dosage: UNK
     Route: 065
  46. CALCIUM CARBONATE\CHOLECALCIFEROL [Suspect]
     Active Substance: CALCIUM CARBONATE\CHOLECALCIFEROL
     Dosage: UNK
     Route: 065
  47. CALCIUM CARBONATE\CHOLECALCIFEROL [Suspect]
     Active Substance: CALCIUM CARBONATE\CHOLECALCIFEROL
     Dosage: UNK UNK, QD;
     Route: 065
  48. CALCIUM CARBONATE\CHOLECALCIFEROL [Suspect]
     Active Substance: CALCIUM CARBONATE\CHOLECALCIFEROL
     Dosage: UNK, QD;
     Route: 065
  49. CALCIUM CARBONATE\CHOLECALCIFEROL [Suspect]
     Active Substance: CALCIUM CARBONATE\CHOLECALCIFEROL
     Dosage: UNK, QD;
     Route: 065
  50. CALCIUM CARBONATE\CHOLECALCIFEROL [Suspect]
     Active Substance: CALCIUM CARBONATE\CHOLECALCIFEROL
     Dosage: UNK; ;
     Route: 065
  51. CISPLATIN [Suspect]
     Active Substance: CISPLATIN
     Indication: Germ cell neoplasm
     Dosage: 79 MG IN LITER;
     Route: 065
     Dates: start: 20200825
  52. CALCIUM [Suspect]
     Active Substance: CALCIUM
     Indication: Mineral supplementation
     Dosage: 1 DF, QD
     Route: 065
  53. CALCIUM [Suspect]
     Active Substance: CALCIUM
     Dosage: 1 DF, QD
     Route: 065
  54. CALCIUM [Suspect]
     Active Substance: CALCIUM
     Dosage: 1 DF, QD (1 IN 1 D)
     Route: 065
  55. CALCIUM [Suspect]
     Active Substance: CALCIUM
     Dosage: 1 DOSAGE FORM, QD (UNK UNK, QD)
     Route: 065
  56. CALCIUM [Suspect]
     Active Substance: CALCIUM
     Dosage: 1 DOSAGE FORM, QD (UNK UNK, QD) (1 DOSAGE FORMS,1 IN 1 D)
     Route: 048
  57. CALCIUM [Suspect]
     Active Substance: CALCIUM
     Dosage: 1 DF, QD
     Route: 065
  58. CALCIUM [Suspect]
     Active Substance: CALCIUM
     Dosage: 1 DF, QD
     Route: 065
  59. CALCIUM [Suspect]
     Active Substance: CALCIUM
     Dosage: 1 DF, QD
     Route: 065
  60. CALCIUM [Suspect]
     Active Substance: CALCIUM
     Dosage: 1 DF, QD
     Route: 065
  61. CALCIUM [Suspect]
     Active Substance: CALCIUM
     Dosage: 1 DOSAGE FORM (1 (UNSPECIFIED UNIT))
     Route: 065
  62. CALCIUM [Suspect]
     Active Substance: CALCIUM
     Dosage: 2 DF, QD
     Route: 065
  63. CALCIUM [Suspect]
     Active Substance: CALCIUM
     Indication: Nutritional supplementation
     Dosage: 2 DF, QD (TABLET), TABLET 2UNK)) (2 DOSAGE)
     Route: 065
  64. CALCIUM [Suspect]
     Active Substance: CALCIUM
     Dosage: 2 DF, QD
     Route: 065
  65. CALCIUM [Suspect]
     Active Substance: CALCIUM
     Dosage: 8 DF, QD
     Route: 065
  66. CALCIUM [Suspect]
     Active Substance: CALCIUM
     Dosage: 8 DF, QD ((8 DOSAGE FORMS,1 IN 1 D))
     Route: 065
  67. CALCIUM [Suspect]
     Active Substance: CALCIUM
     Dosage: 8 DF, QD
     Route: 065
  68. CALCIUM [Suspect]
     Active Substance: CALCIUM
     Dosage: 8 DF, QD
     Route: 065
  69. CALCIUM [Suspect]
     Active Substance: CALCIUM
     Indication: Mineral supplementation
     Dosage: 1 UNK, QD
     Route: 065
  70. CALCIUM [Suspect]
     Active Substance: CALCIUM
     Dosage: 1 UNK, QD
     Route: 065
  71. CALCIUM [Suspect]
     Active Substance: CALCIUM
     Dosage: QD
     Route: 065
  72. CALCIUM [Suspect]
     Active Substance: CALCIUM
     Dosage: UNK UNK, QD
     Route: 065
  73. CALCIUM [Suspect]
     Active Substance: CALCIUM
     Dosage: UNK UNK, QD
     Route: 065
  74. CALCIUM [Suspect]
     Active Substance: CALCIUM
     Dosage: UNK UNK, QD
     Route: 065
  75. CALCIUM [Suspect]
     Active Substance: CALCIUM
     Dosage: UNK UNK, QD
     Route: 065
  76. CALCIUM [Suspect]
     Active Substance: CALCIUM
     Dosage: UNK
     Route: 065
  77. CALCIUM [Suspect]
     Active Substance: CALCIUM
     Dosage: UNK
     Route: 065
  78. CALCIUM [Suspect]
     Active Substance: CALCIUM
     Dosage: UNK, QD;
     Route: 065
  79. CALCIUM [Suspect]
     Active Substance: CALCIUM
     Dosage: UNK, QD;
     Route: 065
  80. CALCIUM [Suspect]
     Active Substance: CALCIUM
     Dosage: UNK, QD;
     Route: 065
  81. CALCIUM [Suspect]
     Active Substance: CALCIUM
     Dosage: UNK, QD;
     Route: 065
  82. CALCIUM [Suspect]
     Active Substance: CALCIUM
     Dosage: UNK, QD;
     Route: 065
  83. CALCIUM [Suspect]
     Active Substance: CALCIUM
     Dosage: UNK, QD;
     Route: 065
  84. CALCIUM [Suspect]
     Active Substance: CALCIUM
     Dosage: UNK, QD;
     Route: 065
  85. CALCIUM [Suspect]
     Active Substance: CALCIUM
     Dosage: UNK;
     Route: 065
  86. CALCIUM\VITAMIN D [Suspect]
     Active Substance: CALCIUM\VITAMIN D
     Indication: Mineral supplementation
     Dosage: 1 DF, QD
     Route: 065
  87. CALCIUM\VITAMIN D [Suspect]
     Active Substance: CALCIUM\VITAMIN D
     Dosage: 1 DF, DOSE: 1 (UNSPECIFIED UNIT)
     Route: 065
  88. CALCIUM\VITAMIN D [Suspect]
     Active Substance: CALCIUM\VITAMIN D
     Dosage: 1 DOSAGE FORM (UNSPECIFIED UNIT)
     Route: 065
  89. CALCIUM\VITAMIN D [Suspect]
     Active Substance: CALCIUM\VITAMIN D
     Dosage: 1 DOSAGE FORM (UNSPECIFIED UNIT)
     Route: 065
  90. CALCIUM\VITAMIN D [Suspect]
     Active Substance: CALCIUM\VITAMIN D
     Dosage: 2 DF, QD
     Route: 065
  91. CALCIUM\VITAMIN D [Suspect]
     Active Substance: CALCIUM\VITAMIN D
     Dosage: 2 DF, QD (2 DOSAGE FORMS,1 D)
     Route: 065
  92. CALCIUM\VITAMIN D [Suspect]
     Active Substance: CALCIUM\VITAMIN D
     Dosage: 8 DF, QD (8 DOSAGE FORMS,1 IN 1 D)
     Route: 065
  93. CALCIUM\VITAMIN D [Suspect]
     Active Substance: CALCIUM\VITAMIN D
     Dosage: 8 DOSAGE FORM, QD
     Route: 065
  94. CALCIUM\VITAMIN D [Suspect]
     Active Substance: CALCIUM\VITAMIN D
     Dosage: 1 UNK, QD
     Route: 065
  95. CALCIUM\VITAMIN D [Suspect]
     Active Substance: CALCIUM\VITAMIN D
     Dosage: UNK UNK, QD
     Route: 065
  96. CALCIUM\VITAMIN D [Suspect]
     Active Substance: CALCIUM\VITAMIN D
     Dosage: UNK, QD
     Route: 065
  97. CALCIUM\VITAMIN D [Suspect]
     Active Substance: CALCIUM\VITAMIN D
     Dosage: UNK, QD
     Route: 065
  98. CALCIUM\VITAMIN D [Suspect]
     Active Substance: CALCIUM\VITAMIN D
     Dosage: UNK
     Route: 065
  99. CALCIUM CARBONATE [Suspect]
     Active Substance: CALCIUM CARBONATE
     Indication: Mineral supplementation
     Dosage: 8 DF, QD
     Route: 065
  100. CHOLECALCIFEROL [Suspect]
     Active Substance: CHOLECALCIFEROL
     Indication: Germ cell neoplasm
     Dosage: UNK QD, UNK UNK, QD
     Route: 065
  101. CHOLECALCIFEROL [Suspect]
     Active Substance: CHOLECALCIFEROL
     Dosage: 1 DF, QD (QD(UNK, QD, (UNK UNK, QD) )
     Route: 065
  102. CHOLECALCIFEROL [Suspect]
     Active Substance: CHOLECALCIFEROL
     Dosage: 1 DOSAGE FORM, QD
     Route: 065
  103. CHOLECALCIFEROL [Suspect]
     Active Substance: CHOLECALCIFEROL
     Dosage: 1 DOSAGE FORM, ONCE A DAY
     Route: 065
  104. CHOLECALCIFEROL [Suspect]
     Active Substance: CHOLECALCIFEROL
     Dosage: 2 DOSAGE FORM, QD
     Route: 065
  105. CHOLECALCIFEROL [Suspect]
     Active Substance: CHOLECALCIFEROL
     Dosage: 2 DOSAGE FORM, QD (TABLET 2 UNK)
     Route: 065
  106. CHOLECALCIFEROL [Suspect]
     Active Substance: CHOLECALCIFEROL
     Dosage: 79 MG,IN 1 LITER (NOT SPECIFIED) (79 MG) (79 MG,1 IN 1 D)
     Route: 065
     Dates: start: 20200825
  107. CHOLECALCIFEROL [Suspect]
     Active Substance: CHOLECALCIFEROL
     Indication: Mineral supplementation
     Dosage: 8 DF, QD
     Route: 065
  108. CHOLECALCIFEROL [Suspect]
     Active Substance: CHOLECALCIFEROL
     Dosage: 8 DF, QD
     Route: 065
  109. CHOLECALCIFEROL [Suspect]
     Active Substance: CHOLECALCIFEROL
     Dosage: 8 DF, QD
     Route: 065
  110. CHOLECALCIFEROL [Suspect]
     Active Substance: CHOLECALCIFEROL
     Dosage: 8 DOSAGE FORM, QD
     Route: 065
  111. CHOLECALCIFEROL [Suspect]
     Active Substance: CHOLECALCIFEROL
     Dosage: 1 UNK, QD
     Route: 065
  112. CHOLECALCIFEROL [Suspect]
     Active Substance: CHOLECALCIFEROL
     Dosage: QD (TABLET(1D) / UNK, QD (TABLET(1D))
     Route: 065
  113. CHOLECALCIFEROL [Suspect]
     Active Substance: CHOLECALCIFEROL
     Dosage: UNK UNK, QD
     Route: 065
  114. CHOLECALCIFEROL [Suspect]
     Active Substance: CHOLECALCIFEROL
     Dosage: UNK DOSAGE FORM, QD
     Route: 065
  115. CHOLECALCIFEROL [Suspect]
     Active Substance: CHOLECALCIFEROL
     Dosage: DOSE: 1 (UNSPECIFIED UNIT)
     Route: 065
  116. CHOLECALCIFEROL [Suspect]
     Active Substance: CHOLECALCIFEROL
     Dosage: 1 DF, QD, (QD(UNK, QD, (UNK UNK, QD) )
     Route: 065
  117. CHOLECALCIFEROL [Suspect]
     Active Substance: CHOLECALCIFEROL
     Dosage: UNK
     Route: 048
  118. CHOLECALCIFEROL [Suspect]
     Active Substance: CHOLECALCIFEROL
     Dosage: UNK
     Route: 065
  119. CHOLECALCIFEROL [Suspect]
     Active Substance: CHOLECALCIFEROL
     Dosage: UNK UNK, QD(TABLET(1D) / UNK, QD (TABLET(1D)) )
     Route: 065
  120. DEXAMETHASONE [Suspect]
     Active Substance: DEXAMETHASONE
     Dosage: 30 MG, QD
     Route: 048
     Dates: start: 20200825
  121. DEXAMETHASONE [Suspect]
     Active Substance: DEXAMETHASONE
     Indication: Supportive care
     Dosage: 8 MG, QD
     Route: 048
     Dates: start: 20200825
  122. DEXAMETHASONE [Suspect]
     Active Substance: DEXAMETHASONE
     Dosage: 8 MG, QD(8 MG, 1X/DAY ) (8 MG,1 D)
     Route: 048
     Dates: start: 20200825
  123. DEXAMETHASONE [Suspect]
     Active Substance: DEXAMETHASONE
     Dosage: UNK
     Route: 065
     Dates: start: 20200825
  124. DOMPERIDONE MALEATE [Suspect]
     Active Substance: DOMPERIDONE MALEATE
     Dosage: 30 MG, QD, (30 MG, QD (PRN (30 MG,1 D))
     Route: 048
     Dates: start: 20200825
  125. DOMPERIDONE MALEATE [Suspect]
     Active Substance: DOMPERIDONE MALEATE
     Indication: Supportive care
     Dosage: 30MG,QD,30MG,QD (PRN (30 MG,1 D)); ;
     Route: 048
     Dates: start: 20200825
  126. DOMPERIDONE MALEATE [Suspect]
     Active Substance: DOMPERIDONE MALEATE
     Dosage: 8 MG, QD; ORAL; ;
     Route: 065
  127. DOMPERIDONE MALEATE [Suspect]
     Active Substance: DOMPERIDONE MALEATE
     Dosage: UNK
     Route: 065
     Dates: start: 20200825
  128. DOMPERIDONE MALEATE [Suspect]
     Active Substance: DOMPERIDONE MALEATE
     Dosage: UNKNOWN; ;
     Route: 065
  129. ENSURE [Suspect]
     Active Substance: AMINO ACIDS\DEXTROSE\ELECTROLYTES NOS\SOYBEAN OIL\VITAMINS
     Indication: Nutritional supplementation
     Dosage: 3 UNK, QD
     Route: 065
  130. ETOPOSIDE [Suspect]
     Active Substance: ETOPOSIDE
     Dosage: 360 MG
     Route: 065
     Dates: start: 202007
  131. ETOPOSIDE [Suspect]
     Active Substance: ETOPOSIDE
     Dosage: UNK
     Route: 065
     Dates: start: 202007
  132. ETOPOSIDE [Suspect]
     Active Substance: ETOPOSIDE
     Dosage: UNK
     Route: 065
     Dates: start: 202007
  133. ETOPOSIDE [Suspect]
     Active Substance: ETOPOSIDE
     Dosage: 360 MG (360 MILLIGRAM;, IN 1 LITER 2 BAGS (360 MG) )
     Route: 065
     Dates: start: 20200825, end: 20200825
  134. ETOPOSIDE [Suspect]
     Active Substance: ETOPOSIDE
     Dosage: 360 MG (IN 1 LITER 2 BAGS (360 MG));
     Route: 065
     Dates: start: 20200825, end: 20200825
  135. ETOPOSIDE [Suspect]
     Active Substance: ETOPOSIDE
     Dosage: 360 MG, QD (360 MILLIGRAM, IN 1 LITER 2 BAGS (360 MG))
     Route: 065
     Dates: start: 20200825, end: 20200825
  136. ETOPOSIDE [Suspect]
     Active Substance: ETOPOSIDE
     Indication: Germ cell neoplasm
     Dosage: 360 MG;
     Route: 065
     Dates: start: 202007
  137. NAUZELIN [Suspect]
     Active Substance: DOMPERIDONE
     Indication: Supportive care
     Dosage: 30 MG, 1D (QD) (AS NECESSARY)
     Route: 048
     Dates: start: 20200825
  138. NAUZELIN [Suspect]
     Active Substance: DOMPERIDONE
     Dosage: 30 MG, QD
     Route: 048
     Dates: start: 20200825
  139. NAUZELIN [Suspect]
     Active Substance: DOMPERIDONE
     Dosage: 30 MILLIGRAM, QD (30 MG, QD (PRN (30 MG,1 D))
     Route: 048
     Dates: start: 20200825
  140. NAUZELIN [Suspect]
     Active Substance: DOMPERIDONE
     Dosage: 8 MG, QD
     Route: 048
     Dates: start: 20200825
  141. NAUZELIN [Suspect]
     Active Substance: DOMPERIDONE
     Dosage: 8 MG, QD (8 MG,1 D)
     Route: 048
     Dates: start: 20200825
  142. NAUZELIN [Suspect]
     Active Substance: DOMPERIDONE
     Dosage: UNK
     Route: 065
     Dates: start: 20200825
  143. NAUZELIN [Suspect]
     Active Substance: DOMPERIDONE
     Dosage: UNK
     Route: 065
     Dates: start: 20200825
  144. NICOTINE [Suspect]
     Active Substance: NICOTINE
     Indication: Drug therapy
     Dosage: 21 MG, QD, (PATCH, EVERY 24 HOURS)
     Route: 065
  145. NICOTINE [Suspect]
     Active Substance: NICOTINE
     Dosage: 21 MG, QD, PATCH, EVERY 24 HOURS (21 MG,1 D)
     Route: 065
  146. NICOTINE [Suspect]
     Active Substance: NICOTINE
     Dosage: 21 MG, QD
     Route: 065
  147. NICOTINE [Suspect]
     Active Substance: NICOTINE
     Dosage: UNK
     Route: 065
  148. NICOTINE [Suspect]
     Active Substance: NICOTINE
     Dosage: UNK; ;
     Route: 065
  149. UNSPECIFIED INGREDIENT [Suspect]
     Active Substance: UNSPECIFIED INGREDIENT
     Dosage: 1 DF, QD
     Route: 065
  150. UNSPECIFIED INGREDIENT [Suspect]
     Active Substance: UNSPECIFIED INGREDIENT
     Dosage: 1 DF, QD TABLETS
     Route: 065
  151. UNSPECIFIED INGREDIENT [Suspect]
     Active Substance: UNSPECIFIED INGREDIENT
     Dosage: 1 DF
     Route: 065
  152. UNSPECIFIED INGREDIENT [Suspect]
     Active Substance: UNSPECIFIED INGREDIENT
     Dosage: 3 DF TABLETS 3UNK
     Route: 065
  153. UNSPECIFIED INGREDIENT [Suspect]
     Active Substance: UNSPECIFIED INGREDIENT
     Dosage: 3 DF
     Route: 065
  154. UNSPECIFIED INGREDIENT [Suspect]
     Active Substance: UNSPECIFIED INGREDIENT
     Dosage: UNK UNK, QD
     Route: 065
  155. UNSPECIFIED INGREDIENT [Suspect]
     Active Substance: UNSPECIFIED INGREDIENT
     Indication: Product used for unknown indication
     Dosage: UNK, QD
     Route: 065
  156. UNSPECIFIED INGREDIENT [Suspect]
     Active Substance: UNSPECIFIED INGREDIENT
     Dosage: UNK, QD
     Route: 065
  157. UNSPECIFIED INGREDIENT [Suspect]
     Active Substance: UNSPECIFIED INGREDIENT
     Dosage: UNK, QD
     Route: 065
  158. UNSPECIFIED INGREDIENT [Suspect]
     Active Substance: UNSPECIFIED INGREDIENT
     Dosage: UNK, QD
     Route: 065
  159. UNSPECIFIED INGREDIENT [Suspect]
     Active Substance: UNSPECIFIED INGREDIENT
     Dosage: UNK, QD
     Route: 065
  160. UNSPECIFIED INGREDIENT [Suspect]
     Active Substance: UNSPECIFIED INGREDIENT
     Dosage: UNK
     Route: 065
  161. ONDANSETRON [Suspect]
     Active Substance: ONDANSETRON
     Indication: Supportive care
     Dosage: (16 MG, 1 D)/16MG QD, ORODISPERSIBLE FILM
     Route: 048
     Dates: start: 20200825
  162. ONDANSETRON [Suspect]
     Active Substance: ONDANSETRON
     Indication: Laxative supportive care
  163. PHENYLBUTAZONE [Suspect]
     Active Substance: PHENYLBUTAZONE
     Dosage: 300 MG (300 MG,1 IN 1 D)
     Route: 065
  164. PHENYLBUTAZONE [Suspect]
     Active Substance: PHENYLBUTAZONE
     Indication: Hypovitaminosis
     Dosage: 300 MG, QD
     Route: 065
  165. PHENYLBUTAZONE [Suspect]
     Active Substance: PHENYLBUTAZONE
     Dosage: 300 MG, QD
     Route: 065
  166. PHENYLBUTAZONE [Suspect]
     Active Substance: PHENYLBUTAZONE
     Dosage: 300 MG, QD
     Route: 065
  167. PHENYLBUTAZONE [Suspect]
     Active Substance: PHENYLBUTAZONE
     Dosage: 300 MG, QD
     Route: 065
  168. PHENYLBUTAZONE [Suspect]
     Active Substance: PHENYLBUTAZONE
     Dosage: 300 MG, QD
     Route: 065
  169. PHENYLBUTAZONE [Suspect]
     Active Substance: PHENYLBUTAZONE
     Dosage: 300 MG, QD
     Route: 065
  170. PROPYPHENAZONE [Suspect]
     Active Substance: PROPYPHENAZONE
     Indication: Hypovitaminosis
     Dosage: 300 MG, QD
     Route: 065
  171. PROPYPHENAZONE [Suspect]
     Active Substance: PROPYPHENAZONE
     Dosage: 300 MG, QD
     Route: 065
  172. PROPYPHENAZONE [Suspect]
     Active Substance: PROPYPHENAZONE
     Indication: Hypovitaminosis
     Dosage: 300 MG,1 D
     Route: 065
  173. PROPYPHENAZONE [Suspect]
     Active Substance: PROPYPHENAZONE
     Dosage: 300 MG, QD
     Route: 065
  174. PROPYPHENAZONE [Suspect]
     Active Substance: PROPYPHENAZONE
     Dosage: 300 MG, QD
     Route: 065
  175. PROPYPHENAZONE [Suspect]
     Active Substance: PROPYPHENAZONE
     Dosage: 300 MG, QD
     Route: 065
  176. SODIUM CHLORIDE [Suspect]
     Active Substance: SODIUM CHLORIDE
     Dosage: 0.9 %
     Route: 065
     Dates: start: 20200825
  177. SODIUM CHLORIDE [Suspect]
     Active Substance: SODIUM CHLORIDE
     Indication: Medication dilution
     Dosage: UNK; ;
     Route: 065
     Dates: start: 20200825, end: 20200825
  178. SODIUM CHLORIDE [Suspect]
     Active Substance: SODIUM CHLORIDE
     Dosage: UNK
     Route: 065
     Dates: start: 20200825, end: 20200825
  179. SODIUM CHLORIDE [Suspect]
     Active Substance: SODIUM CHLORIDE
     Dosage: 0.9 %
     Route: 065
     Dates: start: 20200825, end: 20200825
  180. SODIUM CHLORIDE [Suspect]
     Active Substance: SODIUM CHLORIDE
     Dosage: 0.9 % (SODIUM CHLORIDE INTRAVENOUS INFUSION BP 0.9% W/V0.9)
     Route: 065
     Dates: start: 20200825
  181. SODIUM CHLORIDE [Suspect]
     Active Substance: SODIUM CHLORIDE
     Dosage: 0.9 %
     Route: 065
     Dates: start: 20200825, end: 20200825
  182. SODIUM CHLORIDE [Suspect]
     Active Substance: SODIUM CHLORIDE
     Dosage: 0.9 %
     Route: 042
     Dates: start: 20210825, end: 20210825
  183. SODIUM CHLORIDE [Suspect]
     Active Substance: SODIUM CHLORIDE
     Dosage: UNK
     Route: 042
     Dates: start: 20200825, end: 20200825
  184. SODIUM CHLORIDE [Suspect]
     Active Substance: SODIUM CHLORIDE
     Dosage: UNK
     Route: 065
  185. THIAMINE [Suspect]
     Active Substance: THIAMINE
     Dosage: 1 DF, QD
     Route: 065
  186. THIAMINE [Suspect]
     Active Substance: THIAMINE
     Indication: Hypovitaminosis
     Dosage: 300 MG, QD
     Route: 065
  187. THIAMINE [Suspect]
     Active Substance: THIAMINE
     Indication: Hypovitaminosis
     Dosage: 300 MG, QD
     Route: 065
  188. THIAMINE [Suspect]
     Active Substance: THIAMINE
     Dosage: 300 MG, QD
     Route: 065
  189. THIAMINE [Suspect]
     Active Substance: THIAMINE
     Dosage: 300 MILLIGRAM, QD/300 MG,1 D
     Route: 065
  190. THIAMINE [Suspect]
     Active Substance: THIAMINE
     Dosage: 300 MG, QD
     Route: 065
  191. THIAMINE [Suspect]
     Active Substance: THIAMINE
     Dosage: UNK UNK, QD
     Route: 065
  192. THIAMINE [Suspect]
     Active Substance: THIAMINE
     Dosage: UNK
     Route: 065
  193. THIAMINE [Suspect]
     Active Substance: THIAMINE
     Dosage: UNK
     Route: 065
  194. THIAMINE [Suspect]
     Active Substance: THIAMINE
     Dosage: UNK; ;
     Route: 065
  195. THIAMINE HYDROCHLORIDE [Suspect]
     Active Substance: THIAMINE HYDROCHLORIDE
     Indication: Nutritional supplementation
     Dosage: 1 DF, QD
     Route: 065
  196. THIAMINE HYDROCHLORIDE [Suspect]
     Active Substance: THIAMINE HYDROCHLORIDE
     Indication: Hypovitaminosis
     Dosage: 1 DOSAGE FORM, ONCE A DAY
     Route: 065
  197. THIAMINE HYDROCHLORIDE [Suspect]
     Active Substance: THIAMINE HYDROCHLORIDE
     Dosage: 1 DF;
     Route: 065
  198. THIAMINE HYDROCHLORIDE [Suspect]
     Active Substance: THIAMINE HYDROCHLORIDE
     Indication: Nutritional supplementation
     Dosage: 300 MG, QD
     Route: 065
  199. THIAMINE HYDROCHLORIDE [Suspect]
     Active Substance: THIAMINE HYDROCHLORIDE
     Dosage: 300 MILLIGRAM, ONCE A DAY
     Route: 065
  200. THIAMINE HYDROCHLORIDE [Suspect]
     Active Substance: THIAMINE HYDROCHLORIDE
     Dosage: UNK UNK, QD
     Route: 065
  201. THIAMINE HYDROCHLORIDE [Suspect]
     Active Substance: THIAMINE HYDROCHLORIDE
     Dosage: UNK
     Route: 065
  202. THIAMINE MONONITRATE [Suspect]
     Active Substance: THIAMINE MONONITRATE
     Dosage: 300 MG, QD
     Route: 065
  203. THIAMINE MONONITRATE [Suspect]
     Active Substance: THIAMINE MONONITRATE
     Indication: Hypovitaminosis
     Dosage: 300 MG,1 D
     Route: 065
  204. THIAMINE MONONITRATE [Suspect]
     Active Substance: THIAMINE MONONITRATE
     Dosage: 300 MG, QD
     Route: 065
  205. THIAMINE MONONITRATE [Suspect]
     Active Substance: THIAMINE MONONITRATE
     Indication: Hypovitaminosis
     Dosage: UNK
     Route: 065
  206. THIAMINE MONONITRATE [Suspect]
     Active Substance: THIAMINE MONONITRATE
     Dosage: UNK; ;
     Route: 065
  207. THIAMINE MONONITRATE [Suspect]
     Active Substance: THIAMINE MONONITRATE
     Indication: Hypovitaminosis
     Dosage: 300 MG, QD
     Route: 065

REACTIONS (9)
  - Barrett^s oesophagus [Unknown]
  - Hypersensitivity [Recovered/Resolved]
  - Abdominal distension [Unknown]
  - Vitamin B12 deficiency [Unknown]
  - Regurgitation [Unknown]
  - Dyspepsia [Unknown]
  - Neck pain [Unknown]
  - Oropharyngeal discomfort [Unknown]
  - Eructation [Unknown]

NARRATIVE: CASE EVENT DATE: 20200825
